FAERS Safety Report 7294258-1 (Version None)
Quarter: 2011Q1

REPORT INFORMATION
  Report Type: 
  Country: None (occurrence: None)
  Receive Date: 20110215
  Receipt Date: 20110208
  Transmission Date: 20110831
  Serious: Yes (Death, Other)
  Sender: FDA-Public Use
  Company Number: BR-ABBOTT-11P-020-0703731-00

PATIENT
  Sex: Female

DRUGS (1)
  1. HUMIRA [Suspect]
     Indication: RHEUMATOID ARTHRITIS
     Dates: end: 20101201

REACTIONS (4)
  - FEMUR FRACTURE [None]
  - ABASIA [None]
  - FALL [None]
  - INFARCTION [None]
